FAERS Safety Report 7811716-9 (Version None)
Quarter: 2011Q4

REPORT INFORMATION
  Report Type: 
  Country: None (occurrence: None)
  Receive Date: 20111013
  Receipt Date: 20111011
  Transmission Date: 20120403
  Serious: No
  Sender: FDA-Public Use
  Company Number: US-TEVA-303093USA

PATIENT
  Sex: Female

DRUGS (6)
  1. PROAIR HFA [Suspect]
     Route: 055
  2. THEOPHYLLINE [Concomitant]
  3. IPRATROPIUM BROMIDE [Concomitant]
  4. CLONAZEPAM [Concomitant]
  5. BUDESONIDE W/FORMOTEROL FUMARATE [Concomitant]
     Dosage: 80/4.5
  6. METHADONE HCL [Concomitant]

REACTIONS (1)
  - DRUG INEFFECTIVE [None]
